FAERS Safety Report 7581028-X (Version None)
Quarter: 2011Q2

REPORT INFORMATION
  Report Type: 
  Country: None (occurrence: None)
  Receive Date: 20110622
  Receipt Date: 20110615
  Transmission Date: 20111010
  Serious: Yes (Hospitalization)
  Sender: FDA-Public Use
  Company Number: LEO-2011-00521

PATIENT
  Age: 27 Year
  Sex: Female
  Weight: 68 kg

DRUGS (1)
  1. INNOHEP [Suspect]
     Indication: DEEP VEIN THROMBOSIS
     Dosage: 240 IU/KG (20000 IU, 1 IN 1 D), SUBCUTANEOUS; 175 IU/KG (1 IN 1 D), SUBCUTANEOUS
     Route: 058
     Dates: start: 20110214

REACTIONS (3)
  - DEEP VEIN THROMBOSIS [None]
  - CONDITION AGGRAVATED [None]
  - DRUG EXPOSURE DURING PREGNANCY [None]
